FAERS Safety Report 23178657 (Version 4)
Quarter: 2023Q4

REPORT INFORMATION
  Report Type: Spontaneous
  Country: BR (occurrence: BR)
  Receive Date: 20231113
  Receipt Date: 20231227
  Transmission Date: 20240110
  Serious: Yes (Other)
  Sender: FDA-Public Use
  Company Number: BR-BRISTOL-MYERS SQUIBB COMPANY-2023-161964

PATIENT
  Age: 76 Year
  Sex: Female

DRUGS (3)
  1. ELIQUIS [Suspect]
     Active Substance: APIXABAN
     Indication: Thrombosis
  2. AMLODIPINE BESYLATE [Suspect]
     Active Substance: AMLODIPINE BESYLATE
     Indication: Blood pressure abnormal
  3. INDAPAMIDE [Concomitant]
     Active Substance: INDAPAMIDE
     Indication: Product used for unknown indication

REACTIONS (12)
  - Glaucoma [Unknown]
  - Cough [Unknown]
  - Deep vein thrombosis [Unknown]
  - Phlebitis [Recovered/Resolved]
  - Cerebrovascular accident [Unknown]
  - Blood pressure abnormal [Unknown]
  - Varicose vein [Recovering/Resolving]
  - Peripheral swelling [Unknown]
  - Product quality issue [Unknown]
  - Tooth disorder [Unknown]
  - Thyroid disorder [Unknown]
  - Post procedural infection [Unknown]
